FAERS Safety Report 4767608-5 (Version None)
Quarter: 2005Q3

REPORT INFORMATION
  Report Type: 
  Country: None (occurrence: None)
  Receive Date: 20050913
  Receipt Date: 20050513
  Transmission Date: 20060218
  Serious: Yes (Hospitalization)
  Sender: FDA-Public Use
  Company Number: US-MERCK-0505USA01796

PATIENT
  Age: 69 Year
  Sex: Female
  Weight: 57 kg

DRUGS (19)
  1. SYNTHROID [Concomitant]
     Route: 065
     Dates: start: 19710101
  2. PREMARIN [Concomitant]
     Route: 065
  3. LEVOTHYROXINE SODIUM [Concomitant]
     Route: 065
  4. VANCENASE [Concomitant]
     Route: 065
  5. ZYRTEC [Concomitant]
     Route: 065
  6. VIOXX [Suspect]
     Indication: RHEUMATOID ARTHRITIS
     Route: 048
     Dates: start: 19991228, end: 20030517
  7. ACCUPRIL [Concomitant]
     Route: 065
     Dates: start: 20001204, end: 20030517
  8. CEFACLOR [Concomitant]
     Route: 065
  9. SALSALATE [Concomitant]
     Route: 065
  10. PIROXICAM [Concomitant]
     Route: 065
  11. AZATHIOPRINE [Concomitant]
     Route: 065
  12. DOXEPIN HYDROCHLORIDE [Concomitant]
     Route: 065
  13. LEVOXYL [Concomitant]
     Route: 065
  14. PREDNISONE [Concomitant]
     Route: 065
  15. ENBREL [Concomitant]
     Route: 065
  16. AMMONIUM LACTATE [Concomitant]
     Route: 065
  17. SALAGEN [Concomitant]
     Route: 065
  18. NASACORT AQ [Concomitant]
     Route: 065
  19. MINOCYCLINE [Concomitant]
     Route: 065

REACTIONS (7)
  - BLOOD POTASSIUM ABNORMAL [None]
  - CEREBROVASCULAR ACCIDENT [None]
  - DIABETES MELLITUS [None]
  - HEADACHE [None]
  - MYOCARDIAL INFARCTION [None]
  - REHABILITATION THERAPY [None]
  - RHEUMATOID ARTHRITIS [None]
